FAERS Safety Report 12273703 (Version 1)
Quarter: 2016Q2

REPORT INFORMATION
  Report Type: Spontaneous
  Country: GB (occurrence: GB)
  Receive Date: 20160415
  Receipt Date: 20160415
  Transmission Date: 20160815
  Serious: Yes (Death, Other)
  Sender: FDA-Public Use
  Company Number: PHHY2016GB048365

PATIENT
  Age: 56 Year
  Sex: Male

DRUGS (5)
  1. CARBOPLATIN. [Suspect]
     Active Substance: CARBOPLATIN
     Indication: LUNG ADENOCARCINOMA METASTATIC
     Dosage: CYCLE 2, (500MG) 87% ABS EDTA-110ML/MIN (PS-3)
     Route: 065
     Dates: start: 20150302
  2. XALKORI [Suspect]
     Active Substance: CRIZOTINIB
     Indication: LUNG ADENOCARCINOMA METASTATIC
     Route: 065
     Dates: start: 201503
  3. CARBOPLATIN. [Suspect]
     Active Substance: CARBOPLATIN
     Dosage: CYCLE 1, (500MG) 87% ABS EDTA-110ML/MIN (PS-3)
     Dates: start: 20150209
  4. ALIMTA [Suspect]
     Active Substance: PEMETREXED DISODIUM
     Dosage: (750MG)( 80%) (PS-3) CYCLE 2
     Route: 065
     Dates: start: 20150302
  5. ALIMTA [Suspect]
     Active Substance: PEMETREXED DISODIUM
     Indication: PRODUCT USED FOR UNKNOWN INDICATION
     Dosage: (750MG)( 80%) (PS-3) CYCLE 1
     Route: 065
     Dates: start: 20150209

REACTIONS (3)
  - Lymphangitis [Unknown]
  - Bronchopulmonary aspergillosis [Fatal]
  - Cerebral aspergillosis [Fatal]
